FAERS Safety Report 6627643-9 (Version None)
Quarter: 2010Q1

REPORT INFORMATION
  Report Type: 
  Country: None (occurrence: None)
  Receive Date: 20100311
  Receipt Date: 20100303
  Transmission Date: 20100710
  Serious: Yes (Hospitalization)
  Sender: FDA-Public Use
  Company Number: JP-ASTRAZENECA-2010SE09364

PATIENT
  Age: 57 Year
  Sex: Male

DRUGS (3)
  1. ANAPEINE [Suspect]
     Indication: EPIDURAL ANAESTHESIA
     Route: 008
     Dates: start: 20100222, end: 20100224
  2. GASTER [Concomitant]
     Route: 041
     Dates: start: 20100215, end: 20100224
  3. DALACIN [Concomitant]
     Dosage: DOSE UNKNOWN
     Route: 048
     Dates: start: 20100215, end: 20100224

REACTIONS (3)
  - ALANINE AMINOTRANSFERASE INCREASED [None]
  - ASPARTATE AMINOTRANSFERASE INCREASED [None]
  - HEPATIC FUNCTION ABNORMAL [None]
